FAERS Safety Report 6762478-8 (Version None)
Quarter: 2010Q2

REPORT INFORMATION
  Report Type: 
  Country: None (occurrence: None)
  Receive Date: 20100609
  Receipt Date: 20100602
  Transmission Date: 20101027
  Serious: Yes (Hospitalization, Other)
  Sender: FDA-Public Use
  Company Number: US-ALEXION-A201000266

PATIENT
  Sex: Female
  Weight: 65.76 kg

DRUGS (14)
  1. SOLIRIS [Suspect]
     Indication: PAROXYSMAL NOCTURNAL HAEMOGLOBINURIA
     Dosage: 600 MG, UNK
     Route: 042
     Dates: start: 20100303, end: 20100303
  2. SOLIRIS [Suspect]
     Dosage: 600 MG, QW
     Route: 042
     Dates: start: 20100329, end: 20100413
  3. SOLIRIS [Suspect]
     Dosage: 900 MG, Q2W
     Route: 042
     Dates: start: 20100420
  4. AMBIEN [Concomitant]
  5. CALCIUM CARBONATE [Concomitant]
  6. FERROUS SULFATE TAB [Concomitant]
  7. FOLIC ACID [Concomitant]
  8. GLUCOSAMINE/CHONDROITIN            /01625901/ [Concomitant]
  9. LASIX [Concomitant]
  10. MICRO-K [Concomitant]
  11. PREDNISONE [Concomitant]
  12. TYLENOL (CAPLET) [Concomitant]
  13. VALIUM [Concomitant]
  14. VITAMIN D3 [Concomitant]

REACTIONS (2)
  - BACTERIAL SEPSIS [None]
  - HAEMOGLOBIN DECREASED [None]
